FAERS Safety Report 5987273-9 (Version None)
Quarter: 2008Q4

REPORT INFORMATION
  Report Type: 
  Country: None (occurrence: None)
  Receive Date: 20081209
  Receipt Date: 20081201
  Transmission Date: 20090506
  Serious: No
  Sender: FDA-Public Use
  Company Number: US-ELI_LILLY_AND_COMPANY-US200811001298

PATIENT
  Age: 39 Year
  Sex: Female
  Weight: 102.4 kg

DRUGS (12)
  1. BYETTA [Suspect]
     Indication: TYPE 2 DIABETES MELLITUS
     Dosage: 5 UG, 2/D
     Route: 058
     Dates: start: 20060101, end: 20060101
  2. BYETTA [Suspect]
     Dosage: 10 UG, 2/D
     Route: 058
     Dates: start: 20060101
  3. METFORMIN HCL [Concomitant]
     Indication: TYPE 2 DIABETES MELLITUS
     Dosage: UNK, UNKNOWN
  4. VESICARE [Concomitant]
     Indication: BLADDER DISORDER
     Dosage: UNK, UNKNOWN
  5. NEXIUM [Concomitant]
     Indication: DYSPEPSIA
     Dosage: UNK, UNKNOWN
  6. AVAPRO [Concomitant]
     Indication: RENAL DISORDER
     Dosage: UNK, UNKNOWN
  7. CRESTOR [Concomitant]
     Indication: BLOOD CHOLESTEROL INCREASED
     Dosage: UNK, UNKNOWN
  8. CELEBREX [Concomitant]
     Indication: RHEUMATOID ARTHRITIS
     Dosage: UNK, UNKNOWN
  9. LISINOPRIL [Concomitant]
     Indication: HYPERTENSION
     Dosage: UNK, UNKNOWN
  10. GEMFIBROZIL [Concomitant]
     Indication: BLOOD CHOLESTEROL
     Dosage: UNK, UNKNOWN
  11. NORTRIPTYLINE HCL [Concomitant]
     Indication: DEPRESSION
     Dosage: UNK, UNKNOWN
  12. PLAQUENIL [Concomitant]
     Indication: ARTHRITIS
     Dosage: UNK, UNKNOWN

REACTIONS (1)
  - NO ADVERSE EVENT [None]
